FAERS Safety Report 5056824-3 (Version None)
Quarter: 2006Q2

REPORT INFORMATION
  Report Type: 
  Country: None (occurrence: None)
  Receive Date: 20060619
  Receipt Date: 20050429
  Transmission Date: 20061013
  Serious: Yes (Disabling)
  Sender: FDA-Public Use
  Company Number: WAES 0505USA00043

PATIENT
  Age: 68 Year
  Sex: Female

DRUGS (5)
  1. COZAAR [Suspect]
     Indication: HYPERTENSION
     Dosage: 50 MG/DAILY/PO
     Route: 048
     Dates: start: 19990101
  2. ACTONEL [Concomitant]
  3. AMBIEN [Concomitant]
  4. LIPITOR [Concomitant]
  5. LORAZEPAM [Concomitant]

REACTIONS (2)
  - INSOMNIA [None]
  - STRESS [None]
